FAERS Safety Report 6183322-6 (Version None)
Quarter: 2009Q2

REPORT INFORMATION
  Report Type: 
  Country: None (occurrence: None)
  Receive Date: 20090506
  Receipt Date: 20090501
  Transmission Date: 20091009
  Serious: Yes (Life-Threatening)
  Sender: FDA-Public Use
  Company Number: 2009TJ0093FU2

PATIENT
  Age: 17 Year
  Sex: Female

DRUGS (2)
  1. TWINJECT 0.3 [Suspect]
     Indication: ANAPHYLACTIC REACTION
     Dosage: 0.3 MG, ONE DAY
     Dates: start: 20090422, end: 20090422
  2. DEPO-PROVERA [Concomitant]

REACTIONS (2)
  - DRUG DELIVERY SYSTEM MALFUNCTION [None]
  - PRODUCT QUALITY ISSUE [None]
